FAERS Safety Report 18272113 (Version 1)
Quarter: 2020Q3

REPORT INFORMATION
  Report Type: Spontaneous
  Country: US (occurrence: US)
  Receive Date: 20200916
  Receipt Date: 20200916
  Transmission Date: 20201103
  Serious: Yes (Hospitalization)
  Sender: FDA-Public Use
  Company Number: US-BAYER-2020-190469

PATIENT
  Age: 73 Year
  Sex: Female

DRUGS (1)
  1. GADOBUTROL. [Suspect]
     Active Substance: GADOBUTROL

REACTIONS (5)
  - Incorrect route of product administration [None]
  - Subarachnoid haemorrhage [None]
  - Procedural complication [None]
  - Contrast encephalopathy [None]
  - Product administered at inappropriate site [None]
